FAERS Safety Report 8361432-2 (Version None)
Quarter: 2012Q2

REPORT INFORMATION
  Report Type: 
  Country: None (occurrence: None)
  Receive Date: 20120514
  Receipt Date: 20120427
  Transmission Date: 20120825
  Serious: Yes (Other)
  Sender: FDA-Public Use
  Company Number: 2012RR-56119

PATIENT
  Age: 17 Year
  Sex: Male

DRUGS (1)
  1. ISOTRETINOIN [Suspect]
     Indication: ACNE CYSTIC
     Dosage: 30 MG, BID

REACTIONS (5)
  - SKIN EXFOLIATION [None]
  - XEROSIS [None]
  - RECTAL HAEMORRHAGE [None]
  - CHEILITIS [None]
  - ANAL FISSURE [None]
